FAERS Safety Report 16847379 (Version 1)
Quarter: 2019Q3

REPORT INFORMATION
  Report Type: Spontaneous
  Country: FR (occurrence: FR)
  Receive Date: 20190924
  Receipt Date: 20190924
  Transmission Date: 20191005
  Serious: Yes (Hospitalization, Other)
  Sender: FDA-Public Use
  Company Number: FR-009507513-1909FRA007615

PATIENT
  Age: 77 Year
  Sex: Female

DRUGS (1)
  1. INEGY [Suspect]
     Active Substance: EZETIMIBE\SIMVASTATIN
     Indication: HYPERCHOLESTEROLAEMIA
     Dosage: 10/20 MG, EVERY EVENING
     Route: 048
     Dates: start: 2015, end: 20190826

REACTIONS (8)
  - Faeces discoloured [Unknown]
  - Blood triglycerides increased [Unknown]
  - Chromaturia [Unknown]
  - Nausea [Unknown]
  - Gamma-glutamyltransferase increased [Unknown]
  - Myalgia [Unknown]
  - Drug-induced liver injury [Unknown]
  - Hepatic enzyme increased [Unknown]

NARRATIVE: CASE EVENT DATE: 201908
